FAERS Safety Report 7222957-6 (Version None)
Quarter: 2011Q1

REPORT INFORMATION
  Report Type: 
  Country: None (occurrence: None)
  Receive Date: 20110112
  Receipt Date: 20110107
  Transmission Date: 20110831
  Serious: Yes (Other)
  Sender: FDA-Public Use
  Company Number: US-PFIZER INC-2011004972

PATIENT
  Sex: Male
  Weight: 113.38 kg

DRUGS (2)
  1. VIAGRA [Suspect]
     Indication: ERECTILE DYSFUNCTION
     Dosage: 100 MG, AS NEEDED
     Route: 048
     Dates: start: 20081101
  2. HUMULIN R [Concomitant]
     Indication: TYPE 1 DIABETES MELLITUS
     Dosage: UNK

REACTIONS (3)
  - CAT SCRATCH DISEASE [None]
  - CARPAL TUNNEL SYNDROME [None]
  - BLINDNESS UNILATERAL [None]
